FAERS Safety Report 5114893-6 (Version None)
Quarter: 2006Q3

REPORT INFORMATION
  Report Type: 
  Country: None (occurrence: None)
  Receive Date: 20060922
  Receipt Date: 20060922
  Transmission Date: 20061208
  Serious: No
  Sender: FDA-Public Use
  Company Number: None

PATIENT
  Sex: Female

DRUGS (2)
  1. PAXIL [Suspect]
     Indication: DEPRESSION
     Dosage: 20MG  1 1/2 A DAY  PO
     Route: 048
     Dates: start: 20060701
  2. PAXIL [Suspect]
     Indication: PANIC DISORDER
     Dosage: 20MG  1 1/2 A DAY  PO
     Route: 048
     Dates: start: 20060701

REACTIONS (2)
  - CRYING [None]
  - TREMOR [None]
